FAERS Safety Report 22598761 (Version 3)
Quarter: 2024Q3

REPORT INFORMATION
  Report Type: Spontaneous
  Country: US (occurrence: US)
  Receive Date: 20230614
  Receipt Date: 20240731
  Transmission Date: 20241017
  Serious: No
  Sender: GLAXOSMITHKLINE
  Company Number: US-GSKCCFUS-Case-01718410_AE-96876

PATIENT
  Sex: Female

DRUGS (1)
  1. BENLYSTA [Suspect]
     Active Substance: BELIMUMAB
     Indication: Cutaneous sarcoidosis
     Dosage: UNK

REACTIONS (4)
  - Condition aggravated [Unknown]
  - Malaise [Unknown]
  - Product dose omission issue [Unknown]
  - Product use in unapproved indication [Unknown]
